FAERS Safety Report 4886190-5 (Version None)
Quarter: 2006Q1

REPORT INFORMATION
  Report Type: 
  Country: None (occurrence: None)
  Receive Date: 20060118
  Receipt Date: 20060105
  Transmission Date: 20060701
  Serious: Yes (Disabling, Other)
  Sender: FDA-Public Use
  Company Number: 2006006573

PATIENT
  Age: 37 Year
  Sex: Female

DRUGS (3)
  1. CELEBREX [Suspect]
     Indication: PAIN
     Dosage: ORAL
     Route: 048
  2. BEXTRA [Suspect]
     Indication: PAIN
     Dosage: ORAL
     Route: 048
  3. VIOXX [Suspect]
     Indication: PAIN
     Dosage: ORAL
     Route: 048

REACTIONS (13)
  - CARDIOVASCULAR DISORDER [None]
  - CHEST PAIN [None]
  - DEPRESSION [None]
  - DIFFICULTY IN WALKING [None]
  - DYSPNOEA [None]
  - EMOTIONAL DISORDER [None]
  - FATIGUE [None]
  - LIVER DISORDER [None]
  - MOBILITY DECREASED [None]
  - OEDEMA PERIPHERAL [None]
  - PERIPHERAL EMBOLISM [None]
  - SLEEP DISORDER [None]
  - TACHYCARDIA [None]
